FAERS Safety Report 5783150-7 (Version None)
Quarter: 2008Q2

REPORT INFORMATION
  Report Type: 
  Country: None (occurrence: None)
  Receive Date: 20080619
  Receipt Date: 20080619
  Transmission Date: 20081010
  Serious: Yes (Death)
  Sender: FDA-Public Use
  Company Number: None

PATIENT
  Sex: Male

DRUGS (10)
  1. REVLIMID [Suspect]
     Indication: MULTIPLE MYELOMA
     Dosage: 10MG DAILY PO
     Route: 048
  2. REVLIMID [Concomitant]
  3. MORPHINE [Concomitant]
  4. SIMVASTATIN [Concomitant]
  5. TERAZOSIN HCL [Concomitant]
  6. PREDNISONE [Concomitant]
  7. HYDROCHLOROTHIAZIDE [Concomitant]
  8. FOLIC ACID [Concomitant]
  9. ASCORBIC ACID [Concomitant]
  10. FERROUS SULFATE TAB [Concomitant]

REACTIONS (4)
  - MULTI-ORGAN FAILURE [None]
  - PAIN [None]
  - REFUSAL OF TREATMENT BY PATIENT [None]
  - RENAL FAILURE ACUTE [None]
